FAERS Safety Report 4994422-8 (Version None)
Quarter: 2006Q1

REPORT INFORMATION
  Report Type: 
  Country: None (occurrence: None)
  Receive Date: 20060313
  Receipt Date: 20051103
  Transmission Date: 20060701
  Serious: No
  Sender: FDA-Public Use
  Company Number: 2005-BP-19269BP

PATIENT
  Age: 58 Year
  Sex: Male

DRUGS (3)
  1. SPIRIVA [Suspect]
     Indication: EMPHYSEMA
     Dosage: 18 MCG (18 MCG, 1 IN 1 D) IH
     Route: 055
     Dates: start: 20041101
  2. SPIRIVA [Suspect]
  3. HEART MEDICATIONS (SPECIFICS NOT REPORTED) [Concomitant]

REACTIONS (2)
  - AGEUSIA [None]
  - COUGH [None]
